FAERS Safety Report 13291746 (Version 1)
Quarter: 2017Q1

REPORT INFORMATION
  Report Type: Spontaneous
  Country: US (occurrence: US)
  Receive Date: 20170302
  Receipt Date: 20170302
  Transmission Date: 20170428
  Serious: No
  Sender: FDA-Public Use
  Company Number: US-PERRIGO-16US015234

PATIENT
  Age: 77 Year
  Sex: Female
  Weight: 47.17 kg

DRUGS (7)
  1. CLARITIN [Concomitant]
     Active Substance: LORATADINE
     Indication: SEASONAL ALLERGY
     Dosage: UNK
     Route: 048
  2. TYLENOL [Concomitant]
     Active Substance: ACETAMINOPHEN
     Indication: PAIN
     Dosage: UNK
     Route: 048
  3. LOPERAMIDE HYDROCHLORIDE. [Suspect]
     Active Substance: LOPERAMIDE HYDROCHLORIDE
     Indication: DIARRHOEA
     Dosage: 4 MG FOR FIRST DOSE, 2 MG PRN
     Route: 048
     Dates: start: 201604
  4. CHEMOTHERAPEUTICS [Concomitant]
     Active Substance: UNSPECIFIED INGREDIENT
     Indication: OVARIAN CANCER
     Dosage: UNK
     Route: 065
  5. GABAPENTIN. [Concomitant]
     Active Substance: GABAPENTIN
     Indication: NEUROPATHY PERIPHERAL
     Dosage: UNK
     Route: 048
  6. PROTONIX [Concomitant]
     Active Substance: PANTOPRAZOLE SODIUM
     Indication: ULCER
     Dosage: UNK
     Route: 048
  7. DIURETICS [Concomitant]
     Active Substance: UNSPECIFIED INGREDIENT
     Indication: FLUID RETENTION
     Dosage: UNK
     Route: 048

REACTIONS (2)
  - Flatulence [Unknown]
  - Drug ineffective [Unknown]

NARRATIVE: CASE EVENT DATE: 201604
